FAERS Safety Report 7014912-6 (Version None)
Quarter: 2010Q3

REPORT INFORMATION
  Report Type: 
  Country: None (occurrence: None)
  Receive Date: 20100927
  Receipt Date: 20100208
  Transmission Date: 20110219
  Serious: No
  Sender: FDA-Public Use
  Company Number: US-ASTRAZENECA-2010SE05603

PATIENT
  Age: 673 Month
  Sex: Female
  Weight: 90.7 kg

DRUGS (4)
  1. ARIMIDEX [Suspect]
     Indication: BREAST CANCER
     Route: 048
     Dates: start: 20090701, end: 20091001
  2. ARIMIDEX [Suspect]
     Route: 048
     Dates: start: 20091201
  3. METFORMIN [Concomitant]
  4. CALCIUM [Concomitant]

REACTIONS (3)
  - ALOPECIA [None]
  - BONE PAIN [None]
  - HAIR TEXTURE ABNORMAL [None]
